FAERS Safety Report 4364088-9 (Version None)
Quarter: 2004Q2

REPORT INFORMATION
  Report Type: 
  Country: None (occurrence: None)
  Receive Date: 20040525
  Receipt Date: 20040312
  Transmission Date: 20050107
  Serious: Yes (Hospitalization)
  Sender: FDA-Public Use
  Company Number: US-BRISTOL-MYERS SQUIBB COMPANY-12531513

PATIENT
  Age: 46 Year
  Sex: Female
  Weight: 69 kg

DRUGS (7)
  1. CARBOPLATIN [Suspect]
     Indication: PERITONEAL CARCINOMA
     Route: 042
     Dates: start: 20021004, end: 20040101
  2. TAXOL [Suspect]
     Indication: PERITONEAL CARCINOMA
     Dosage: 8 CYCLES WITH CARBOPLATIN FOLLOWED BY 12 COURSES GIVEN MONTHLY
     Route: 042
     Dates: start: 20021004, end: 20040101
  3. BENADRYL [Concomitant]
     Indication: PREMEDICATION
  4. PEPCID [Concomitant]
     Indication: PREMEDICATION
  5. DEXAMETHASONE [Concomitant]
     Indication: PREMEDICATION
  6. MULTIVITAMIN [Concomitant]
  7. HERBAL ONT [Concomitant]

REACTIONS (18)
  - AMNESIA [None]
  - ARTHRALGIA [None]
  - ASTHENIA [None]
  - BONE PAIN [None]
  - CONNECTIVE TISSUE DISORDER [None]
  - DEMYELINATION [None]
  - DEPRESSION [None]
  - ERYTHEMA [None]
  - GASTROINTESTINAL DISORDER [None]
  - LUPUS-LIKE SYNDROME [None]
  - MYALGIA [None]
  - MYOPATHY [None]
  - OVARIAN CANCER [None]
  - PAIN [None]
  - RASH [None]
  - RENAL PAIN [None]
  - RHEUMATOID ARTHRITIS [None]
  - TRANSIENT ISCHAEMIC ATTACK [None]
